FAERS Safety Report 6748407-1 (Version None)
Quarter: 2010Q2

REPORT INFORMATION
  Report Type: 
  Country: None (occurrence: None)
  Receive Date: 20100527
  Receipt Date: 20100527
  Transmission Date: 20101027
  Serious: Yes (Disabling, Other)
  Sender: FDA-Public Use
  Company Number: None

PATIENT
  Age: 63 Year
  Sex: Female
  Weight: 61.2356 kg

DRUGS (1)
  1. LEVAQUIN [Suspect]
     Indication: RESPIRATORY DISORDER
     Dosage: ONE TAB DAILY 7 DAYS ORAL
     Route: 048
     Dates: start: 20091217, end: 20091223

REACTIONS (12)
  - ANXIETY [None]
  - AUTOIMMUNE DISORDER [None]
  - DEPRESSION [None]
  - HYPERGLYCAEMIA [None]
  - INSOMNIA [None]
  - NERVOUS SYSTEM DISORDER [None]
  - PAIN [None]
  - PARAESTHESIA [None]
  - TENDON DISORDER [None]
  - TENDON RUPTURE [None]
  - VISION BLURRED [None]
  - WEIGHT INCREASED [None]
